FAERS Safety Report 9144193 (Version 1)
Quarter: 2013Q1

REPORT INFORMATION
  Report Type: Spontaneous
  Country: ZA (occurrence: ZA)
  Receive Date: 20130306
  Receipt Date: 20130306
  Transmission Date: 20140127
  Serious: Yes (Other)
  Sender: FDA-Public Use
  Company Number: ZA-BAYER-2013-024615

PATIENT
  Sex: Female

DRUGS (1)
  1. QLAIRA [Suspect]

REACTIONS (14)
  - Lip swelling [Recovered/Resolved]
  - Eye swelling [Recovered/Resolved]
  - Auricular swelling [Recovered/Resolved]
  - Local swelling [Recovered/Resolved]
  - Rash pruritic [Recovered/Resolved]
  - Blister [Recovered/Resolved]
  - Oedema mouth [None]
  - Vision blurred [Not Recovered/Not Resolved]
  - Fatigue [None]
  - Decreased appetite [Recovered/Resolved]
  - Hypomenorrhoea [None]
  - Renal impairment [None]
  - Hepatic function abnormal [None]
  - Depression [Recovered/Resolved]
